FAERS Safety Report 9331714 (Version 5)
Quarter: 2015Q2

REPORT INFORMATION
  Report Type: Report from Study
  Country: GB (occurrence: GB)
  Receive Date: 20130605
  Receipt Date: 20150521
  Transmission Date: 20150821
  Serious: Yes (Hospitalization, Other)
  Sender: FDA-Public Use
  Company Number: GB-BAYER-2013-069142

PATIENT
  Age: 66 Year
  Sex: Female

DRUGS (1)
  1. BETAFERON [Suspect]
     Active Substance: INTERFERON BETA-1B
     Indication: MULTIPLE SCLEROSIS
     Dosage: 250 ?G, QOD
     Route: 058

REACTIONS (12)
  - Vaginal haemorrhage [None]
  - Pancreatitis [Recovered/Resolved]
  - Urinary tract infection [Recovered/Resolved]
  - Bladder disorder [None]
  - Osteopenia [None]
  - Product use issue [None]
  - Injection site pain [Not Recovered/Not Resolved]
  - Cholecystitis [Recovered/Resolved]
  - Vaginal disorder [None]
  - Genital neoplasm malignant female [None]
  - Viral infection [None]
  - Blood test abnormal [None]

NARRATIVE: CASE EVENT DATE: 2013
